FAERS Safety Report 6308522-3 (Version None)
Quarter: 2009Q3

REPORT INFORMATION
  Report Type: 
  Country: None (occurrence: None)
  Receive Date: 20090813
  Receipt Date: 20090810
  Transmission Date: 20100115
  Serious: Yes (Life-Threatening, Hospitalization)
  Sender: FDA-Public Use
  Company Number: FR-AVENTIS-200912942FR

PATIENT
  Age: 25 Year
  Sex: Female

DRUGS (5)
  1. CLOMID [Suspect]
     Indication: ARTIFICIAL INSEMINATION BY PARTNER
     Route: 048
     Dates: start: 20081222, end: 20081227
  2. DECAPEPTYL                         /00975902/ [Suspect]
     Route: 030
     Dates: start: 20081109
  3. GONAL-F [Suspect]
     Route: 058
     Dates: start: 20081127, end: 20081204
  4. GONAL-F [Suspect]
     Route: 058
     Dates: start: 20081205, end: 20081219
  5. OVITRELLE [Suspect]
     Route: 058
     Dates: start: 20081220

REACTIONS (1)
  - MYOCARDIAL INFARCTION [None]
